FAERS Safety Report 8132362-6 (Version None)
Quarter: 2012Q1

REPORT INFORMATION
  Report Type: 
  Country: None (occurrence: None)
  Receive Date: 20120208
  Receipt Date: 20120127
  Transmission Date: 20120608
  Serious: Yes (Hospitalization)
  Sender: FDA-Public Use
  Company Number: DSA_48842_2012

PATIENT
  Age: 84 Year
  Sex: Female

DRUGS (9)
  1. DILTIAZEM HYDROCHLORIDE [Suspect]
     Indication: PRODUCT USED FOR UNKNOWN INDICATION
     Dosage: 120 MG, QD, ORAL
     Route: 048
     Dates: start: 20110804, end: 20110816
  2. FUROSEMIDE [Concomitant]
  3. QUINAPRIL HYDROCHLORIDE [Suspect]
     Indication: PRODUCT USED FOR UNKNOWN INDICATION
     Dosage: 20 MG, QD, ORAL
     Route: 048
     Dates: start: 20090101, end: 20110816
  4. TRAMADOL HCL [Concomitant]
  5. PAROXETINE HCL [Concomitant]
  6. SYNTROM [Concomitant]
  7. ALDACTONE [Suspect]
     Indication: PRODUCT USED FOR UNKNOWN INDICATION
     Dosage: 25 MG, QD, ORAL
     Route: 048
     Dates: start: 20100101, end: 20110816
  8. OMEPRAZOLE [Concomitant]
  9. LORAZEPAM [Concomitant]

REACTIONS (6)
  - MALAISE [None]
  - DRUG INTERACTION [None]
  - HYPOTENSION [None]
  - RENAL FAILURE ACUTE [None]
  - ACIDOSIS [None]
  - HYPERKALAEMIA [None]
